FAERS Safety Report 6256115-9 (Version None)
Quarter: 2009Q2

REPORT INFORMATION
  Report Type: 
  Country: None (occurrence: None)
  Receive Date: 20090630
  Receipt Date: 20090630
  Transmission Date: 20091009
  Serious: Yes (Life-Threatening, Hospitalization)
  Sender: FDA-Public Use
  Company Number: None

PATIENT
  Age: 52 Year
  Sex: Female
  Weight: 70.3 kg

DRUGS (3)
  1. DOXEPIN HCL [Suspect]
     Indication: ANXIETY
     Dosage: 25 MG TWICE DAILY PO
     Route: 048
     Dates: start: 20090101, end: 20090616
  2. DOXEPIN HCL [Suspect]
     Indication: DEPRESSION
     Dosage: 25 MG TWICE DAILY PO
     Route: 048
     Dates: start: 20090101, end: 20090616
  3. CITALOPRAM HYDROBROMIDE [Suspect]
     Indication: DEPRESSION
     Dosage: 20 MG DAILY PO
     Route: 048
     Dates: start: 20090101, end: 20090616

REACTIONS (3)
  - AMNESIA [None]
  - ELECTROCARDIOGRAM QT PROLONGED [None]
  - LOSS OF CONSCIOUSNESS [None]
